FAERS Safety Report 7185436-0 (Version None)
Quarter: 2010Q4

REPORT INFORMATION
  Report Type: 
  Country: None (occurrence: None)
  Receive Date: 20101222
  Receipt Date: 20100604
  Transmission Date: 20110411
  Serious: Yes (Other)
  Sender: FDA-Public Use
  Company Number: US-AMGEN-KDL414993

PATIENT

DRUGS (5)
  1. ENBREL [Suspect]
     Indication: RHEUMATOID ARTHRITIS
     Dosage: 50 MG, QWK
     Route: 058
     Dates: start: 20040101
  2. AVANDIA [Concomitant]
     Dosage: UNK UNK, UNK
  3. GLIBENCLAMIDE [Concomitant]
     Dosage: UNK UNK, UNK
  4. SIMVASTATIN [Concomitant]
     Dosage: UNK UNK, UNK
  5. RAMIPRIL [Concomitant]
     Dosage: UNK UNK, UNK

REACTIONS (1)
  - B-CELL LYMPHOMA [None]
